FAERS Safety Report 19153367 (Version 1)
Quarter: 2021Q2

REPORT INFORMATION
  Report Type: Spontaneous
  Country: US (occurrence: US)
  Receive Date: 20210418
  Receipt Date: 20210418
  Transmission Date: 20210717
  Serious: Yes (Hospitalization)
  Sender: FDA-Public Use
  Company Number: None

PATIENT
  Age: 73 Year
  Sex: Female

DRUGS (9)
  1. VITAMIN B12 [Concomitant]
     Active Substance: CYANOCOBALAMIN
  2. FOLIC ACID. [Concomitant]
     Active Substance: FOLIC ACID
  3. PRILOSEC [Concomitant]
     Active Substance: OMEPRAZOLE MAGNESIUM
  4. SIMVASTATIN. [Concomitant]
     Active Substance: SIMVASTATIN
  5. LEVOTHYROXINE. [Concomitant]
     Active Substance: LEVOTHYROXINE
  6. VITAMIND D2 [Concomitant]
  7. ASPIRIN. [Concomitant]
     Active Substance: ASPIRIN
  8. ZOLOFT [Concomitant]
     Active Substance: SERTRALINE HYDROCHLORIDE
  9. RITUXAN [Suspect]
     Active Substance: RITUXIMAB
     Indication: RHEUMATOID ARTHRITIS
     Dosage: OTHER FREQUENCY:CYCLE EVERY 6 MO;?
     Route: 041
     Dates: start: 20200723

REACTIONS (12)
  - Aspartate aminotransferase increased [None]
  - Respiratory failure [None]
  - Pneumonia [None]
  - Headache [None]
  - Chills [None]
  - Weight decreased [None]
  - Diarrhoea [None]
  - Anaemia [None]
  - Pyrexia [None]
  - Orthostatic hypotension [None]
  - Dizziness [None]
  - Alanine aminotransferase increased [None]

NARRATIVE: CASE EVENT DATE: 20210114
